FAERS Safety Report 7419061-0 (Version None)
Quarter: 2011Q2

REPORT INFORMATION
  Report Type: 
  Country: None (occurrence: None)
  Receive Date: 20110415
  Receipt Date: 20110407
  Transmission Date: 20111010
  Serious: Yes (Death, Life-Threatening, Hospitalization)
  Sender: FDA-Public Use
  Company Number: PHHY2011JP18468

PATIENT
  Sex: Female

DRUGS (8)
  1. FERROUS CITRATE [Concomitant]
     Dosage: 100 MG, UNK
     Route: 048
  2. MUCOSTA [Concomitant]
     Dosage: 200 MG, UNK
     Route: 048
  3. NOVAMIN [Concomitant]
     Dosage: 15 MG, UNK
     Route: 048
  4. GLEEVEC [Suspect]
     Indication: GASTROINTESTINAL STROMAL TUMOUR
     Dosage: 400 MG, DAILY
     Route: 048
     Dates: start: 20101225, end: 20110218
  5. TAKEPRON [Concomitant]
     Dosage: 15 MG, UNK
     Route: 048
  6. ETODOLAC [Concomitant]
     Dosage: 400 MG, UNK
     Route: 048
  7. LASIX [Concomitant]
     Dosage: 40 MG, UNK
     Route: 048
  8. MAGMITT KENEI [Concomitant]
     Dosage: 990 MG, UNK
     Route: 048

REACTIONS (9)
  - GASTROINTESTINAL PERFORATION [None]
  - ABDOMINAL PAIN [None]
  - DECREASED APPETITE [None]
  - DEPRESSED LEVEL OF CONSCIOUSNESS [None]
  - PERITONITIS [None]
  - HEART RATE DECREASED [None]
  - ABDOMINAL DISTENSION [None]
  - DYSPNOEA [None]
  - ASCITES [None]
